FAERS Safety Report 20969760 (Version 1)
Quarter: 2022Q2

REPORT INFORMATION
  Report Type: Spontaneous
  Country: DK (occurrence: DK)
  Receive Date: 20220616
  Receipt Date: 20220616
  Transmission Date: 20220721
  Serious: Yes (Life-Threatening, Hospitalization)
  Sender: FDA-Public Use
  Company Number: None

PATIENT
  Age: 74 Year
  Sex: Male

DRUGS (5)
  1. XARELTO [Suspect]
     Active Substance: RIVAROXABAN
     Indication: Atrial fibrillation
     Dosage: 20 MG, QD
     Route: 048
     Dates: start: 2017, end: 20220522
  2. ACETAMINOPHEN [Concomitant]
     Active Substance: ACETAMINOPHEN
     Indication: Pain
     Dosage: UNK
     Dates: start: 20201005
  3. LERCANIDIPINE ORION [Concomitant]
     Indication: Hypertension
     Dates: start: 20210503
  4. METOPROLOL SUCCINATE [Concomitant]
     Active Substance: METOPROLOL SUCCINATE
     Indication: Hypertension
     Dosage: UNK
     Dates: start: 20170608
  5. LOSARTAN [Concomitant]
     Active Substance: LOSARTAN
     Indication: Hypertension
     Dosage: UNK
     Dates: start: 20170608

REACTIONS (6)
  - Fall [Unknown]
  - Monoparesis [Unknown]
  - Dysarthria [Unknown]
  - Cerebral haemorrhage [Not Recovered/Not Resolved]
  - Facial paralysis [Unknown]
  - Neurologic neglect syndrome [Unknown]

NARRATIVE: CASE EVENT DATE: 20220501
